FAERS Safety Report 5069460-X (Version None)
Quarter: 2006Q3

REPORT INFORMATION
  Report Type: 
  Country: None (occurrence: None)
  Receive Date: 20060714
  Receipt Date: 20060321
  Transmission Date: 20061208
  Serious: No
  Sender: FDA-Public Use
  Company Number: 2006SP001330

PATIENT
  Age: 64 Year
  Sex: Female
  Weight: 68.0396 kg

DRUGS (9)
  1. LUNESTA [Suspect]
     Indication: INSOMNIA
     Dosage: 3 MG;HS;ORAL
     Route: 048
     Dates: start: 20060301
  2. METOPROLOL TARTRATE [Concomitant]
  3. FLECAINIDE ACETATE [Concomitant]
  4. LORAZEPAM [Concomitant]
  5. ASPIRIN [Concomitant]
  6. NASAL SPRAY [Concomitant]
  7. PRILOSEC [Concomitant]
  8. MULTIVITAMIN [Concomitant]
  9. LAXATIVES [Concomitant]

REACTIONS (2)
  - DYSGEUSIA [None]
  - MIDDLE INSOMNIA [None]
